FAERS Safety Report 5119739-8 (Version None)
Quarter: 2006Q4

REPORT INFORMATION
  Report Type: 
  Country: None (occurrence: None)
  Receive Date: 20061003
  Receipt Date: 20060925
  Transmission Date: 20070319
  Serious: Yes (Hospitalization)
  Sender: FDA-Public Use
  Company Number: IT-SANOFI-SYNTHELABO-A06200600309

PATIENT
  Sex: Male

DRUGS (2)
  1. ATENOLOL [Concomitant]
     Indication: CARDIAC FAILURE
     Dosage: NOT REPORTED
     Route: 048
  2. PLAVIX [Suspect]
     Indication: TRANSIENT ISCHAEMIC ATTACK
     Dosage: NOT REPORTED
     Route: 048

REACTIONS (1)
  - VISUAL DISTURBANCE [None]
